FAERS Safety Report 7632132-9 (Version None)
Quarter: 2011Q3

REPORT INFORMATION
  Report Type: 
  Country: None (occurrence: None)
  Receive Date: 20110725
  Receipt Date: 20110725
  Transmission Date: 20111222
  Serious: No
  Sender: FDA-Public Use
  Company Number: None

PATIENT
  Age: 28 Year
  Sex: Female
  Weight: 45 kg

DRUGS (1)
  1. AZITHROMYCIN [Suspect]
     Indication: ACNE
     Dosage: 250 MG
     Route: 048
     Dates: start: 20110715, end: 20110717

REACTIONS (1)
  - ABDOMINAL DISCOMFORT [None]
